FAERS Safety Report 5460912-7 (Version None)
Quarter: 2007Q3

REPORT INFORMATION
  Report Type: 
  Country: None (occurrence: None)
  Receive Date: 20070810
  Receipt Date: 20070222
  Transmission Date: 20080115
  Serious: Yes (Other)
  Sender: FDA-Public Use
  Company Number: 200710319BWH

PATIENT
  Age: 55 Year
  Sex: Male

DRUGS (10)
  1. TRASYLOL [Suspect]
     Indication: HEART TRANSPLANT
     Dosage: 10 ML, ONCE, INTRAVENOUS; 200 ML, ONCE, INTRAVENOUS
     Route: 042
     Dates: start: 20060101
  2. TRASYLOL [Suspect]
     Indication: MEDICAL DEVICE REMOVAL
     Dosage: 10 ML, ONCE, INTRAVENOUS; 200 ML, ONCE, INTRAVENOUS
     Route: 042
     Dates: start: 20060101
  3. TRASYLOL [Suspect]
     Indication: HEART TRANSPLANT
     Dosage: 10 ML, ONCE, INTRAVENOUS; 200 ML, ONCE, INTRAVENOUS
     Route: 042
     Dates: start: 20060101
  4. TRASYLOL [Suspect]
     Indication: MEDICAL DEVICE REMOVAL
     Dosage: 10 ML, ONCE, INTRAVENOUS; 200 ML, ONCE, INTRAVENOUS
     Route: 042
     Dates: start: 20060101
  5. SOLU-MEDROL [Concomitant]
  6. PANCURONIUM [Concomitant]
  7. CEFUROXIME [Concomitant]
  8. FENTANYL [Concomitant]
  9. MIDAZOLAM HCL [Concomitant]
  10. STOMIDATE [Concomitant]

REACTIONS (3)
  - ANAPHYLACTIC REACTION [None]
  - BRONCHOSPASM [None]
  - HYPOTENSION [None]
